FAERS Safety Report 8154613-4 (Version None)
Quarter: 2012Q1

REPORT INFORMATION
  Report Type: 
  Country: None (occurrence: None)
  Receive Date: 20120221
  Receipt Date: 20120214
  Transmission Date: 20120608
  Serious: Yes (Other)
  Sender: FDA-Public Use
  Company Number: US-TEVA-322711USA

PATIENT

DRUGS (1)
  1. LOSEASONIQUE [Suspect]
     Route: 048

REACTIONS (9)
  - KIDNEY INFECTION [None]
  - INSOMNIA [None]
  - PAIN [None]
  - FEELING ABNORMAL [None]
  - PAROSMIA [None]
  - SUICIDAL IDEATION [None]
  - URINARY TRACT INFECTION [None]
  - SLEEP DISORDER [None]
  - ANXIETY [None]
